FAERS Safety Report 9233870 (Version 1)
Quarter: 2013Q1

REPORT INFORMATION
  Report Type: Spontaneous
  Country: US (occurrence: None)
  Receive Date: 20121031
  Receipt Date: 20121031
  Transmission Date: 20140127
  Serious: No
  Sender: FDA-Public Use
  Company Number: PHEH2012US015185

PATIENT
  Age: 48 Year
  Sex: Female

DRUGS (1)
  1. GILENYA (FTY) CAPSULE, 0.5MG [Suspect]
     Indication: MULTIPLE SCLEROSIS
     Route: 048
     Dates: start: 20120622, end: 20120622

REACTIONS (9)
  - Drug intolerance [None]
  - Nausea [None]
  - Vomiting [None]
  - Decreased appetite [None]
  - Headache [None]
  - Dizziness [None]
  - Cough [None]
  - Nasopharyngitis [None]
  - Sneezing [None]
